FAERS Safety Report 5652256-5 (Version None)
Quarter: 2008Q1

REPORT INFORMATION
  Report Type: 
  Country: None (occurrence: None)
  Receive Date: 20080305
  Receipt Date: 20080207
  Transmission Date: 20080703
  Serious: No
  Sender: FDA-Public Use
  Company Number: US-BOEHRINGER INGELHEIM GMBH, GERMANY-2007-BP-24423BP

PATIENT
  Age: 76 Year
  Sex: Male
  Weight: 67 kg

DRUGS (5)
  1. SPIRIVA [Suspect]
     Dates: end: 20070813
  2. ALBUTEROL [Concomitant]
  3. FORADIL [Concomitant]
  4. ANMOVEX [Concomitant]
  5. OTHERS (NOT REPORTED) [Concomitant]
     Route: 048

REACTIONS (1)
  - LUNG DISORDER [None]
